FAERS Safety Report 20201877 (Version 2)
Quarter: 2022Q1

REPORT INFORMATION
  Report Type: Spontaneous
  Country: US (occurrence: None)
  Receive Date: 20211217
  Receipt Date: 20220210
  Transmission Date: 20220424
  Serious: Yes (Disabling)
  Sender: FDA-Public Use
  Company Number: US-ROCHE-2979737

PATIENT

DRUGS (2)
  1. ACTIVASE [Suspect]
     Active Substance: ALTEPLASE
     Indication: Product used for unknown indication
     Route: 065
     Dates: start: 20211207
  2. ACTIVASE [Suspect]
     Active Substance: ALTEPLASE

REACTIONS (2)
  - Product complaint [Unknown]
  - No adverse event [Unknown]
